FAERS Safety Report 24914469 (Version 1)
Quarter: 2025Q1

REPORT INFORMATION
  Report Type: Spontaneous
  Country: IL (occurrence: IL)
  Receive Date: 20250203
  Receipt Date: 20250203
  Transmission Date: 20250409
  Serious: Yes (Hospitalization)
  Sender: NOVITIUM PHARMA
  Company Number: IL-NOVITIUMPHARMA-2025ILNVP00272

PATIENT
  Age: 17 Year
  Sex: Male

DRUGS (17)
  1. PREDNISONE [Suspect]
     Active Substance: PREDNISONE
     Indication: Spinal cord infarction
     Route: 048
  2. PREDNISONE [Suspect]
     Active Substance: PREDNISONE
     Indication: Embolism
  3. ACETAZOLAMIDE [Suspect]
     Active Substance: ACETAZOLAMIDE
     Indication: Spinal cord infarction
  4. ACETAZOLAMIDE [Suspect]
     Active Substance: ACETAZOLAMIDE
     Indication: Embolism
  5. METHYLPREDNISOLONE [Concomitant]
     Active Substance: METHYLPREDNISOLONE
     Indication: Spinal cord infarction
     Route: 042
  6. METHYLPREDNISOLONE [Concomitant]
     Active Substance: METHYLPREDNISOLONE
     Indication: Embolism
  7. ENOXAPARIN SODIUM [Concomitant]
     Active Substance: ENOXAPARIN SODIUM
     Indication: Spinal cord infarction
     Route: 058
  8. ENOXAPARIN SODIUM [Concomitant]
     Active Substance: ENOXAPARIN SODIUM
     Indication: Embolism
     Route: 058
  9. POLYETHYLENE GLYCOL [Concomitant]
     Active Substance: POLYETHYLENE GLYCOL
     Indication: Neurogenic bowel
  10. GLYCERIN [Concomitant]
     Active Substance: GLYCERIN
     Indication: Neurogenic bowel
  11. METHENAMINE HIPPURATE [Concomitant]
     Active Substance: METHENAMINE HIPPURATE
     Indication: Prophylaxis urinary tract infection
  12. Ascorbic-acid [Concomitant]
     Indication: Prophylaxis urinary tract infection
  13. WARFARIN [Concomitant]
     Active Substance: WARFARIN
     Indication: Heparin-induced thrombocytopenia
  14. ASPIRIN [Concomitant]
     Active Substance: ASPIRIN
     Indication: Heparin-induced thrombocytopenia
  15. OMEPRAZOLE [Concomitant]
     Active Substance: OMEPRAZOLE
     Indication: Gastrointestinal disorder prophylaxis
  16. FESOTERODINE [Concomitant]
     Active Substance: FESOTERODINE
     Indication: Detrusor sphincter dyssynergia
  17. TAMSULOSIN [Concomitant]
     Active Substance: TAMSULOSIN
     Indication: Detrusor sphincter dyssynergia

REACTIONS (2)
  - Metabolic acidosis [Recovered/Resolved]
  - Hyperglycaemia [Recovered/Resolved]
